FAERS Safety Report 17939774 (Version 1)
Quarter: 2020Q2

REPORT INFORMATION
  Report Type: Spontaneous
  Country: DE (occurrence: DE)
  Receive Date: 20200624
  Receipt Date: 20200624
  Transmission Date: 20200714
  Serious: Yes (Hospitalization)
  Sender: FDA-Public Use
  Company Number: DE-MYLANLABS-2020M1057718

PATIENT
  Age: 77 Year
  Sex: Male

DRUGS (15)
  1. ACETYLSALICYLIC ACID [Interacting]
     Active Substance: ASPIRIN
     Indication: PRODUCT USED FOR UNKNOWN INDICATION
     Dosage: 100 MG, 0-1-0-0, TABLETTEN
     Route: 048
  2. CLOPIDOGREL [Suspect]
     Active Substance: CLOPIDOGREL BISULFATE
     Indication: PRODUCT USED FOR UNKNOWN INDICATION
     Dosage: 75 MG, 1-0-0-0, TABLETTEN
     Route: 048
  3. FEBUXOSTAT. [Concomitant]
     Active Substance: FEBUXOSTAT
     Dosage: 80 MG, 1-0-0-0, TABLETTEN
     Route: 048
  4. METAMIZOL                          /06276701/ [Concomitant]
     Active Substance: METAMIZOLE
     Dosage: 500 MG, NACH BEDARF, TABLETTEN
     Route: 048
  5. PANTOPRAZOL                        /01263201/ [Concomitant]
     Active Substance: PANTOPRAZOLE
     Dosage: 40 MG, 1-0-1-0, TABLETTEN
     Route: 048
  6. MIRCERA [Suspect]
     Active Substance: METHOXY POLYETHYLENE GLYCOL-EPOETIN BETA
     Dosage: UNK UNK, QD, 75 U/2WOCHEN, 1-0-0-0
  7. PREGABALIN. [Concomitant]
     Active Substance: PREGABALIN
     Dosage: 75 MG, 1-0-0-0, KAPSELN
     Route: 048
  8. XIPAMID [Concomitant]
     Active Substance: XIPAMIDE
     Dosage: 5 MG, 1-0-0-0, TABLETTEN
     Route: 048
  9. PREDNISOLON                        /00016201/ [Interacting]
     Active Substance: PREDNISOLONE
     Indication: PRODUCT USED FOR UNKNOWN INDICATION
     Dosage: 5 MG, 1-0-0-0, TABLETTEN
     Route: 048
  10. TAMSULOSIN [Concomitant]
     Active Substance: TAMSULOSIN
     Dosage: 0.4 MG, 0-0-1-0, KAPSELN
     Route: 048
  11. RAMIPRIL. [Concomitant]
     Active Substance: RAMIPRIL
     Dosage: 2.5 MG, 1-0-0-0, TABLETTEN
     Route: 048
  12. CARVEDILOL. [Concomitant]
     Active Substance: CARVEDILOL
     Dosage: 25 MG, 1-0-1-0, TABLETTEN
     Route: 048
  13. SIMVASTATIN. [Concomitant]
     Active Substance: SIMVASTATIN
     Dosage: 20 MG, 0-0-1-0, TABLETTEN
     Route: 048
  14. TORASEMID [Concomitant]
     Active Substance: TORSEMIDE
     Dosage: 5 MG, 0.5-0-0-0, TABLETTEN
     Route: 048
  15. TROSPIUM [Concomitant]
     Active Substance: TROSPIUM
     Dosage: 30 MG, 1-0-0-0

REACTIONS (7)
  - General physical health deterioration [Unknown]
  - Haematochezia [Unknown]
  - Haematoma [Unknown]
  - Pallor [Unknown]
  - Post procedural haemorrhage [Unknown]
  - Drug interaction [Unknown]
  - Epistaxis [Unknown]
